FAERS Safety Report 21844691 (Version 3)
Quarter: 2023Q2

REPORT INFORMATION
  Report Type: Report from Study
  Country: US (occurrence: US)
  Receive Date: 20230110
  Receipt Date: 20230630
  Transmission Date: 20230722
  Serious: Yes (Hospitalization)
  Sender: FDA-Public Use
  Company Number: US-GW PHARMA-2023-US-000273

PATIENT
  Age: 32 Year
  Sex: Female

DRUGS (2)
  1. EPIDIOLEX [Suspect]
     Active Substance: CANNABIDIOL
     Indication: Lennox-Gastaut syndrome
     Dosage: GIVE 2 ML BY MOUTH EACH MORNING, 1 ML WITH LUNCH, AND 2 ML EACH EVENING
     Route: 048
     Dates: start: 202210
  2. EPIDIOLEX [Suspect]
     Active Substance: CANNABIDIOL
     Dosage: 2 MILLILITER EACH MORNING, 1 ML WITH LUNCH, AND 2 ML EACH EVENING
     Route: 048
     Dates: start: 202107

REACTIONS (2)
  - Biopsy bone marrow [Unknown]
  - Blood copper decreased [Unknown]

NARRATIVE: CASE EVENT DATE: 20230101
